FAERS Safety Report 15468327 (Version 1)
Quarter: 2018Q4

REPORT INFORMATION
  Report Type: Spontaneous
  Country: US (occurrence: US)
  Receive Date: 20181001
  Receipt Date: 20181001
  Transmission Date: 20190204
  Serious: No
  Sender: FDA-Public Use
  Company Number: None

PATIENT
  Age: 57 Year
  Sex: Male
  Weight: 0 kg

DRUGS (1)
  1. TALTZ [Suspect]
     Active Substance: IXEKIZUMAB
     Indication: PSORIATIC ARTHROPATHY
     Dosage: INJECT 160 MG (2MSYRINGES) SUBCUTANEOUSLY AT WEEK 0 THEN 80 MG ( 1 SYRINGE) AT WEEK 2 AS DIRECTED
     Dates: start: 201808

REACTIONS (2)
  - Pneumonitis [None]
  - Pain [None]
